FAERS Safety Report 6193073-X (Version None)
Quarter: 2009Q2

REPORT INFORMATION
  Report Type: 
  Country: None (occurrence: None)
  Receive Date: 20090514
  Receipt Date: 20090514
  Transmission Date: 20091009
  Serious: Yes (Other)
  Sender: FDA-Public Use
  Company Number: None

PATIENT
  Sex: Female
  Weight: 58.9676 kg

DRUGS (1)
  1. HEPARIN SODIUM [Suspect]
     Indication: THROMBOSIS PROPHYLAXIS
     Dosage: ONE .5 ML SYRINGE 1X ID
     Route: 023
     Dates: start: 20080505, end: 20080505

REACTIONS (8)
  - ABDOMINAL PAIN [None]
  - ASTHMA [None]
  - DEFAECATION URGENCY [None]
  - DIZZINESS [None]
  - DRUG EFFECT DECREASED [None]
  - DYSPNOEA [None]
  - NAUSEA [None]
  - SYNCOPE [None]
